FAERS Safety Report 5798260-8 (Version None)
Quarter: 2008Q3

REPORT INFORMATION
  Report Type: 
  Country: None (occurrence: None)
  Receive Date: 20080702
  Receipt Date: 20080625
  Transmission Date: 20090109
  Serious: Yes (Other)
  Sender: FDA-Public Use
  Company Number: FR-JNJFOC-20080700043

PATIENT

DRUGS (1)
  1. DOXORUBICIN HCL [Suspect]
     Indication: MYCOSIS FUNGOIDES
     Route: 042

REACTIONS (2)
  - LUNG DISORDER [None]
  - STAPHYLOCOCCAL SEPSIS [None]
